FAERS Safety Report 23716787 (Version 1)
Quarter: 2024Q2

REPORT INFORMATION
  Report Type: Spontaneous
  Country: IT (occurrence: IT)
  Receive Date: 20240408
  Receipt Date: 20240408
  Transmission Date: 20240716
  Serious: Yes (Hospitalization, Other)
  Sender: FDA-Public Use
  Company Number: None

PATIENT
  Age: 38 Year
  Sex: Female

DRUGS (2)
  1. TACROLIMUS [Suspect]
     Active Substance: TACROLIMUS
     Indication: Immunosuppressant drug therapy
     Dosage: UNK
     Route: 065
  2. GADOLINIUM [Concomitant]
     Active Substance: GADOLINIUM
     Indication: Product used for unknown indication
     Dosage: UNK
     Route: 065

REACTIONS (9)
  - Diplopia [Recovered/Resolved]
  - Nystagmus [Recovered/Resolved]
  - Dysarthria [Recovered/Resolved]
  - Dysarthria [Recovering/Resolving]
  - Eye movement disorder [Recovering/Resolving]
  - Psychomotor skills impaired [Recovering/Resolving]
  - Neurotoxicity [Recovering/Resolving]
  - Transplant rejection [Unknown]
  - Hyperintensity in brain deep nuclei [Recovering/Resolving]

NARRATIVE: CASE EVENT DATE: 20230101
